FAERS Safety Report 7788451-9 (Version None)
Quarter: 2011Q3

REPORT INFORMATION
  Report Type: 
  Country: None (occurrence: None)
  Receive Date: 20110927
  Receipt Date: 20110919
  Transmission Date: 20111222
  Serious: Yes (Hospitalization)
  Sender: FDA-Public Use
  Company Number: DSA_47444_2011

PATIENT
  Sex: Female
  Weight: 81.6475 kg

DRUGS (14)
  1. XENAZINE [Suspect]
     Indication: DYSKINESIA
     Dosage: (12.5 MG TID ORAL), (12.5 MG BID ORAL); (12.5 MG Q.H.S. ORAL)
     Route: 048
     Dates: start: 20110810, end: 20110825
  2. XENAZINE [Suspect]
     Indication: DYSKINESIA
     Dosage: (12.5 MG TID ORAL), (12.5 MG BID ORAL); (12.5 MG Q.H.S. ORAL)
     Route: 048
     Dates: start: 20110601
  3. ADVAIR DISKUS 100/50 [Concomitant]
  4. SYNTHROID [Concomitant]
  5. LOVASTATIN [Concomitant]
  6. OMEPRAZOLE [Concomitant]
  7. AMBIEN [Concomitant]
  8. HYDROCHLOROTHIAZIDE [Concomitant]
  9. ASPIRIN [Concomitant]
  10. ARTANE [Concomitant]
  11. LORAZEPAM [Concomitant]
  12. AMLODIPINE BESYLATE [Concomitant]
  13. LEXAPRO [Concomitant]
  14. BOTOX [Concomitant]

REACTIONS (11)
  - MUSCLE TIGHTNESS [None]
  - TARDIVE DYSKINESIA [None]
  - PAIN IN JAW [None]
  - CONDITION AGGRAVATED [None]
  - CONTUSION [None]
  - LIMB DISCOMFORT [None]
  - EYE PAIN [None]
  - PYELONEPHRITIS [None]
  - DRUG EFFECT DECREASED [None]
  - DIZZINESS [None]
  - DYSPNOEA [None]
